FAERS Safety Report 9913082 (Version 2)
Quarter: 2014Q1

REPORT INFORMATION
  Report Type: Spontaneous
  Country: ES (occurrence: None)
  Receive Date: 20140214
  Receipt Date: 20140326
  Transmission Date: 20141002
  Serious: Yes (Disabling, Other)
  Sender: FDA-Public Use
  Company Number: 2176264

PATIENT
  Age: 50 Year
  Sex: Female

DRUGS (7)
  1. OXALIPLATIN [Suspect]
     Indication: CHEMOTHERAPY
     Dates: start: 20140128, end: 20140128
  2. 5-FU [Concomitant]
  3. CALCIUM FOLINATE [Concomitant]
  4. DEXAMETHASONE [Concomitant]
  5. RANITIDIN [Concomitant]
  6. GRANISETRON [Concomitant]
  7. BEVACIZUMAB [Concomitant]

REACTIONS (9)
  - Blindness [None]
  - Deafness [None]
  - Anxiety [None]
  - Loss of consciousness [None]
  - Abdominal pain upper [None]
  - Dizziness [None]
  - Rash [None]
  - Vomiting [None]
  - Hypersensitivity [None]
